FAERS Safety Report 4265468-2 (Version None)
Quarter: 2004Q1

REPORT INFORMATION
  Report Type: 
  Country: None (occurrence: None)
  Receive Date: 20040106
  Receipt Date: 20031222
  Transmission Date: 20041129
  Serious: Yes (Hospitalization)
  Sender: FDA-Public Use
  Company Number: 200320359US

PATIENT
  Age: 48 Year
  Sex: Male
  Weight: 136.6 kg

DRUGS (7)
  1. LANTUS [Suspect]
     Dosage: 50 U
  2. LANTUS [Suspect]
     Dosage: 20 U QD
  3. HUMALOG [Concomitant]
  4. LIPITOR [Concomitant]
  5. NEURONTIN [Concomitant]
  6. PRILOSEC [Concomitant]
  7. ZOLOFT [Concomitant]

REACTIONS (17)
  - ANXIETY [None]
  - ASTHENIA [None]
  - BLOOD POTASSIUM DECREASED [None]
  - CALCULUS URINARY [None]
  - CHEST PAIN [None]
  - DIARRHOEA [None]
  - DRUG SCREEN POSITIVE [None]
  - DYSARTHRIA [None]
  - DYSURIA [None]
  - HYPOGLYCAEMIA [None]
  - INCOHERENT [None]
  - MEDICATION ERROR [None]
  - NAUSEA [None]
  - SYNCOPE [None]
  - THINKING ABNORMAL [None]
  - VISION BLURRED [None]
  - VOMITING [None]
